FAERS Safety Report 9245858 (Version 1)
Quarter: 2013Q2

REPORT INFORMATION
  Report Type: Spontaneous
  Country: US (occurrence: US)
  Receive Date: 20130422
  Receipt Date: 20130422
  Transmission Date: 20140414
  Serious: No
  Sender: FDA-Public Use
  Company Number: US-BRISTOL-MYERS SQUIBB COMPANY-17477894

PATIENT
  Age: 75 Year
  Sex: Female

DRUGS (3)
  1. ELIQUIS [Suspect]
     Dates: start: 20130309
  2. LANOXIN [Concomitant]
  3. OXYCODONE [Concomitant]

REACTIONS (4)
  - Epistaxis [Unknown]
  - Urticaria [Unknown]
  - Paranasal sinus hypersecretion [Unknown]
  - Nausea [Unknown]
